FAERS Safety Report 6656124-1 (Version None)
Quarter: 2010Q1

REPORT INFORMATION
  Report Type: 
  Country: None (occurrence: None)
  Receive Date: 20100329
  Receipt Date: 20100322
  Transmission Date: 20100710
  Serious: Yes (Other)
  Sender: FDA-Public Use
  Company Number: B0643428A

PATIENT
  Age: 46 Year
  Sex: Male
  Weight: 69 kg

DRUGS (1)
  1. ZYNTABAC [Suspect]
     Indication: TOBACCO ABUSE
     Route: 048
     Dates: start: 20100201, end: 20100221

REACTIONS (2)
  - CONDITION AGGRAVATED [None]
  - PSORIASIS [None]
